FAERS Safety Report 9639012 (Version 2)
Quarter: 2013Q4

REPORT INFORMATION
  Report Type: Report from Study
  Country: DE (occurrence: CO)
  Receive Date: 20131022
  Receipt Date: 20131029
  Transmission Date: 20140711
  Serious: Yes (Death, Hospitalization)
  Sender: FDA-Public Use
  Company Number: DE-ACTELION-A-US2013-90197

PATIENT
  Age: 61 Year
  Sex: Female

DRUGS (6)
  1. VENTAVIS [Suspect]
     Indication: PULMONARY HYPERTENSION
     Dosage: UNK
     Route: 055
     Dates: start: 20131016, end: 20131016
  2. NIFEDIPINE [Concomitant]
  3. CLONAZEPAN [Concomitant]
  4. SILDENAFIL [Concomitant]
  5. METOCLOPRAMIDA [Concomitant]
  6. TIROXINA [Concomitant]

REACTIONS (5)
  - Pulmonary embolism [Fatal]
  - Tachycardia [Recovered/Resolved]
  - Dyspnoea [Recovered/Resolved]
  - Dizziness [Recovered/Resolved]
  - Pain in extremity [Recovered/Resolved]
